FAERS Safety Report 25564198 (Version 1)
Quarter: 2025Q3

REPORT INFORMATION
  Report Type: Spontaneous
  Country: US (occurrence: US)
  Receive Date: 20250716
  Receipt Date: 20250716
  Transmission Date: 20251021
  Serious: No
  Sender: NOVO NORDISK
  Company Number: US-NOVOPROD-1364596

PATIENT
  Sex: Female

DRUGS (2)
  1. OZEMPIC [Suspect]
     Active Substance: SEMAGLUTIDE
     Indication: Weight control
  2. OZEMPIC [Suspect]
     Active Substance: SEMAGLUTIDE
     Indication: Blood glucose
     Dosage: 2MG, QW
     Route: 058
     Dates: start: 202310

REACTIONS (3)
  - Injection site vesicles [Not Recovered/Not Resolved]
  - Injection site swelling [Recovered/Resolved]
  - Product use in unapproved indication [Unknown]
